FAERS Safety Report 10264528 (Version 1)
Quarter: 2014Q2

REPORT INFORMATION
  Report Type: Spontaneous
  Country: US (occurrence: US)
  Receive Date: 20140627
  Receipt Date: 20140627
  Transmission Date: 20141212
  Serious: Yes (Other)
  Sender: FDA-Public Use
  Company Number: US-BRACCO-010709

PATIENT
  Age: 41 Year
  Sex: Female
  Weight: 99 kg

DRUGS (3)
  1. MULTIHANCE [Suspect]
     Indication: ANGIOGRAM
     Dosage: LOT NUMBER AND EXPIRATION DATE NOT RECORDED BY FACILITY, VIAL DISCARDED
     Route: 042
     Dates: start: 20140401, end: 20140401
  2. TORADOL [Concomitant]
     Dosage: IV PUSH EVERY 4 HOURS AS NEEDED FOR HEADACHE
     Route: 042
     Dates: start: 20140401
  3. HEPARIN [Concomitant]
     Dosage: 1000 CC PER HOUR
     Route: 041

REACTIONS (1)
  - Anaphylactic reaction [Recovered/Resolved]
